FAERS Safety Report 4486764-X (Version None)
Quarter: 2004Q4

REPORT INFORMATION
  Report Type: 
  Country: None (occurrence: None)
  Receive Date: 20041027
  Receipt Date: 20041015
  Transmission Date: 20050328
  Serious: Yes (Other)
  Sender: FDA-Public Use
  Company Number: US-JNJFOC-20041005104

PATIENT
  Sex: Male
  Weight: 60.33 kg

DRUGS (5)
  1. TOPAMAX [Suspect]
     Indication: DRUG USE FOR UNKNOWN INDICATION
     Route: 065
     Dates: start: 20040315
  2. CLOZARIL [Suspect]
     Indication: SCHIZOAFFECTIVE DISORDER
     Route: 049
     Dates: start: 20040515, end: 20040617
  3. FLUTICASONE PROPIONATE [Concomitant]
     Route: 055
     Dates: start: 20031001
  4. OLANZAPINE [Concomitant]
     Dosage: TAKEN AT BEDTIME
     Dates: start: 20040506
  5. DIVALPROEX SODIUM EXTENDED RELEASE [Concomitant]
     Dosage: 250 MG EVERY MORNING, 1000 MG AT 5:00 P.M.
     Dates: start: 20040408

REACTIONS (4)
  - INFECTION [None]
  - NEUTROPENIA [None]
  - PYREXIA [None]
  - WEIGHT DECREASED [None]
